FAERS Safety Report 6530441-8 (Version None)
Quarter: 2010Q1

REPORT INFORMATION
  Report Type: 
  Country: None (occurrence: None)
  Receive Date: 20100107
  Receipt Date: 20091228
  Transmission Date: 20100710
  Serious: Yes (Life-Threatening, Other)
  Sender: FDA-Public Use
  Company Number: US-GENENTECH-296528

PATIENT
  Age: 49 Year
  Sex: Female

DRUGS (2)
  1. ACTIVASE [Suspect]
     Indication: CEREBRAL VENOUS THROMBOSIS
     Dosage: 20 MG, UNK
     Route: 042
  2. HEPARIN [Suspect]
     Indication: CEREBRAL VENOUS THROMBOSIS

REACTIONS (3)
  - GENERAL PHYSICAL HEALTH DETERIORATION [None]
  - RESPIRATORY FAILURE [None]
  - STATUS EPILEPTICUS [None]
